FAERS Safety Report 7571779-5 (Version None)
Quarter: 2011Q2

REPORT INFORMATION
  Report Type: 
  Country: None (occurrence: None)
  Receive Date: 20110624
  Receipt Date: 20110620
  Transmission Date: 20111010
  Serious: Yes (Life-Threatening, Hospitalization)
  Sender: FDA-Public Use
  Company Number: US-AMGEN-USACT2011031479

PATIENT
  Age: 36 Year
  Sex: Female

DRUGS (7)
  1. DOXORUBICIN HCL [Concomitant]
     Dosage: 60 MG/M2, UNK
     Route: 042
     Dates: start: 20090107
  2. BEVACIZUMAB [Concomitant]
     Dosage: UNK
     Route: 042
     Dates: start: 20090107
  3. PACLITAXEL [Concomitant]
     Dosage: 80 MG/M2, UNK
     Route: 042
     Dates: start: 20090107
  4. TAMOXIFEN CITRATE [Concomitant]
     Dosage: 20 MG, QD
     Dates: start: 20090731, end: 20100614
  5. PEGFILGRASTIM [Suspect]
     Indication: BREAST CANCER
     Dosage: 6 UNK, UNK
     Route: 058
     Dates: start: 20090107
  6. FILGRASTIM [Suspect]
     Indication: BREAST CANCER
     Dosage: 5 UNK, UNK
     Route: 058
     Dates: start: 20090107
  7. CYCLOPHOSPHAMIDE [Concomitant]
     Dosage: 600 MG/M2, QD
     Dates: start: 20090107

REACTIONS (2)
  - PULMONARY EMBOLISM [None]
  - THROMBOSIS [None]
